FAERS Safety Report 5912892-5 (Version None)
Quarter: 2008Q4

REPORT INFORMATION
  Report Type: 
  Country: None (occurrence: None)
  Receive Date: 20081006
  Receipt Date: 20080918
  Transmission Date: 20090506
  Serious: Yes (Life-Threatening)
  Sender: FDA-Public Use
  Company Number: 2008BI024711

PATIENT
  Age: 39 Year
  Sex: Female

DRUGS (4)
  1. TYSABRI [Suspect]
     Indication: RELAPSING-REMITTING MULTIPLE SCLEROSIS
     Dosage: 300 MG; QM; IM
     Route: 030
     Dates: start: 20080805, end: 20080904
  2. BETAFERON /BETASERON [Concomitant]
  3. CORTICOSTEROIDS [Concomitant]
  4. AZATHIOPRINE [Concomitant]

REACTIONS (1)
  - ANAPHYLACTIC SHOCK [None]
